FAERS Safety Report 11324976 (Version 1)
Quarter: 2015Q3

REPORT INFORMATION
  Report Type: Spontaneous
  Country: IN (occurrence: IN)
  Receive Date: 20150730
  Receipt Date: 20150730
  Transmission Date: 20151125
  Serious: Yes (Other)
  Sender: FDA-Public Use
  Company Number: PHHY2015IN088176

PATIENT
  Age: 13 Year
  Sex: Female

DRUGS (3)
  1. EPINEPHRINE. [Concomitant]
     Active Substance: EPINEPHRINE
     Indication: PRODUCT USED FOR UNKNOWN INDICATION
     Route: 065
  2. TRIAMCINOLONE [Suspect]
     Active Substance: TRIAMCINOLONE
     Indication: GIANT CELL EPULIS
     Dosage: 10 MG, UNK
     Route: 026
  3. LIGNOCAINE [Concomitant]
     Active Substance: LIDOCAINE HYDROCHLORIDE
     Indication: ANAESTHESIA
     Dosage: 2 UNK, UNK
     Route: 026

REACTIONS (6)
  - Retinal haemorrhage [Not Recovered/Not Resolved]
  - Tachycardia [Unknown]
  - Hypertension [Unknown]
  - Accidental exposure to product [Unknown]
  - Retinal artery occlusion [Not Recovered/Not Resolved]
  - Embolism [Not Recovered/Not Resolved]
